FAERS Safety Report 8354775 (Version 6)
Quarter: 2013Q3

REPORT INFORMATION
  Report Type: Report from Study
  Country: CA (occurrence: CA)
  Receive Date: 20120125
  Receipt Date: 20130827
  Transmission Date: 20140515
  Serious: Yes (Other)
  Sender: FDA-Public Use
  Company Number: CA-ROCHE-782329

PATIENT
  Age: 79 Year
  Sex: Male
  Weight: 93 kg

DRUGS (6)
  1. VEMURAFENIB [Suspect]
     Indication: MALIGNANT MELANOMA
     Dosage: LAST DOSE PRIOR TO SAE: 31/JAN/2011
     Route: 048
  2. VEMURAFENIB [Suspect]
     Route: 048
  3. SLOW-K [Concomitant]
     Route: 065
  4. NORVASC [Concomitant]
     Route: 065
  5. ENTROPHEN [Concomitant]
     Route: 065
  6. ZOPICLONE [Concomitant]
     Route: 065

REACTIONS (2)
  - Squamous cell carcinoma of skin [Recovered/Resolved]
  - Bowen^s disease [Recovered/Resolved]
